FAERS Safety Report 11530099 (Version 2)
Quarter: 2015Q4

REPORT INFORMATION
  Report Type: Spontaneous
  Country: US (occurrence: US)
  Receive Date: 20150921
  Receipt Date: 20151102
  Transmission Date: 20160304
  Serious: No
  Sender: FDA-Public Use
  Company Number: US-GLAXOSMITHKLINE-US2015134343

PATIENT
  Sex: Female

DRUGS (15)
  1. CALCIUM SUPPLEMENTS [Concomitant]
     Active Substance: CALCIUM
  2. GLUCOSAMINE [Concomitant]
     Active Substance: GLUCOSAMINE
  3. COMBIVENT [Concomitant]
     Active Substance: ALBUTEROL SULFATE\IPRATROPIUM BROMIDE
  4. OMEGA XL BY GREAT HEALTHWORKS [Concomitant]
  5. BREO ELLIPTA [Suspect]
     Active Substance: FLUTICASONE FUROATE\VILANTEROL TRIFENATATE
     Indication: BRONCHIECTASIS
     Dosage: 1 PUFF(S), 1D
     Route: 055
     Dates: start: 20150727
  6. LOVASTATIN. [Concomitant]
     Active Substance: LOVASTATIN
  7. ERYTHROMYCIN. [Concomitant]
     Active Substance: ERYTHROMYCIN
  8. CENTRUM SILVER [Concomitant]
     Active Substance: MINERALS\VITAMINS
  9. LORATADINE. [Concomitant]
     Active Substance: LORATADINE
  10. COLESTIPOL [Concomitant]
     Active Substance: COLESTIPOL
  11. MONTELUKAST [Concomitant]
     Active Substance: MONTELUKAST SODIUM
  12. BIOTENE [Concomitant]
  13. FAMOTIDINE. [Concomitant]
     Active Substance: FAMOTIDINE
  14. ADVAIR DISKUS [Suspect]
     Active Substance: FLUTICASONE PROPIONATE\SALMETEROL XINAFOATE
     Indication: PRODUCT USED FOR UNKNOWN INDICATION
     Dosage: UNK, BID
     Route: 055
     Dates: start: 1991, end: 201507
  15. ESTRADIOL. [Concomitant]
     Active Substance: ESTRADIOL

REACTIONS (7)
  - Dyspnoea [Not Recovered/Not Resolved]
  - Nasal congestion [Not Recovered/Not Resolved]
  - Sputum increased [Not Recovered/Not Resolved]
  - Respiratory tract congestion [Not Recovered/Not Resolved]
  - Cough [Not Recovered/Not Resolved]
  - Diarrhoea [Recovering/Resolving]
  - Nasal congestion [Unknown]

NARRATIVE: CASE EVENT DATE: 2013
